FAERS Safety Report 5782312-2 (Version None)
Quarter: 2008Q2

REPORT INFORMATION
  Report Type: 
  Country: None (occurrence: None)
  Receive Date: 20080623
  Receipt Date: 20080613
  Transmission Date: 20081010
  Serious: Yes (Other)
  Sender: FDA-Public Use
  Company Number: DE-BOEHRINGER INGELHEIM GMBH, GERMANY-2008-DE-01999DE

PATIENT
  Sex: Male
  Weight: 91 kg

DRUGS (2)
  1. PRAMIPEXOLE DIHYDROCHLORIDE [Suspect]
     Indication: PARKINSON'S DISEASE
     Dosage: TEST DRUG WAS ESCALATED FROM THE INITIAL DOSE LEVEL 0,375MG TOTAL DAILY DOSE UP TO DOSE LEVEL 5, WHI
     Route: 048
     Dates: start: 20080104, end: 20080315
  2. PRAMIPEXOLE DIHYDROCHLORIDE [Suspect]
     Dates: start: 20080319, end: 20080322

REACTIONS (2)
  - HEART RATE IRREGULAR [None]
  - RESTLESSNESS [None]
